FAERS Safety Report 24222861 (Version 9)
Quarter: 2025Q3

REPORT INFORMATION
  Report Type: Report from Study
  Country: US (occurrence: US)
  Receive Date: 20240819
  Receipt Date: 20250903
  Transmission Date: 20251021
  Serious: Yes (Other)
  Sender: TAKEDA
  Company Number: US-TAKEDA-2024TUS082426

PATIENT
  Sex: Female
  Weight: 55 kg

DRUGS (24)
  1. HUMAN IMMUNOGLOBULIN G [Suspect]
     Active Substance: HUMAN IMMUNOGLOBULIN G
     Indication: Immunodeficiency common variable
     Dosage: 30 GRAM, Q4WEEKS
  2. ACETAMINOPHEN [Concomitant]
     Active Substance: ACETAMINOPHEN
  3. EPINEPHRINE [Concomitant]
     Active Substance: EPINEPHRINE
  4. FISH OIL [Concomitant]
     Active Substance: FISH OIL
  5. ESTERIFIED ESTROGENS AND METHYLTESTOSTERONE [Concomitant]
     Active Substance: ESTROGENS, CONJUGATED\ESTROGENS, ESTERIFIED\ESTRONE SODIUM SULFATE\METHYLTESTOSTERONE
  6. PEPTO-BISMOL [Concomitant]
     Active Substance: BISMUTH SUBSALICYLATE
  7. SINGULAIR [Concomitant]
     Active Substance: MONTELUKAST SODIUM
  8. VITAMIN E [Concomitant]
     Active Substance: .ALPHA.-TOCOPHEROL
  9. ELIQUIS [Concomitant]
     Active Substance: APIXABAN
  10. SODIUM CHLORIDE [Concomitant]
     Active Substance: SODIUM CHLORIDE
  11. PREMARIN [Concomitant]
     Active Substance: ESTROGENS, CONJUGATED
  12. CALCIUM\CHOLECALCIFEROL [Concomitant]
     Active Substance: CALCIUM\CHOLECALCIFEROL
  13. BONIVA [Concomitant]
     Active Substance: IBANDRONATE SODIUM
  14. LUTEIN [Concomitant]
     Active Substance: LUTEIN
  15. ASPIRIN [Concomitant]
     Active Substance: ASPIRIN
  16. LEVOFLOXACIN [Concomitant]
     Active Substance: LEVOFLOXACIN
  17. DIPHENHYDRAMINE HYDROCHLORIDE [Concomitant]
     Active Substance: DIPHENHYDRAMINE HYDROCHLORIDE
  18. LOTREL [Concomitant]
     Active Substance: AMLODIPINE BESYLATE\BENAZEPRIL HYDROCHLORIDE
  19. PROVERA [Concomitant]
     Active Substance: MEDROXYPROGESTERONE ACETATE
  20. SYNTHROID [Concomitant]
     Active Substance: LEVOTHYROXINE SODIUM
  21. Hair skin nails [Concomitant]
  22. MINERALS\VITAMINS [Concomitant]
     Active Substance: MINERALS\VITAMINS
  23. BUDESONIDE [Concomitant]
     Active Substance: BUDESONIDE
  24. ESTROGENS\METHYLTESTOSTERONE [Concomitant]
     Active Substance: ESTROGENS\METHYLTESTOSTERONE

REACTIONS (13)
  - Age-related macular degeneration [Recovering/Resolving]
  - Colitis microscopic [Unknown]
  - Clostridium difficile infection [Unknown]
  - Cataract [Unknown]
  - Gastrointestinal infection [Unknown]
  - Abnormal faeces [Unknown]
  - Tenderness [Unknown]
  - Polycythaemia [Unknown]
  - Urinary tract infection [Unknown]
  - Pain [Unknown]
  - Vomiting [Unknown]
  - Diarrhoea [Unknown]
  - Nausea [Unknown]
